FAERS Safety Report 6748166-2 (Version None)
Quarter: 2010Q2

REPORT INFORMATION
  Report Type: 
  Country: None (occurrence: None)
  Receive Date: 20100531
  Receipt Date: 20100525
  Transmission Date: 20101027
  Serious: Yes (Hospitalization, Disabling, Other)
  Sender: FDA-Public Use
  Company Number: GB-BRISTOL-MYERS SQUIBB COMPANY-15122435

PATIENT
  Age: 72 Year
  Sex: Female

DRUGS (13)
  1. ABILIFY [Interacting]
  2. LEFLUNOMIDE [Interacting]
     Indication: RHEUMATOID ARTHRITIS
     Route: 048
     Dates: start: 20091013, end: 20100422
  3. METHOTREXATE [Suspect]
     Indication: RHEUMATOID ARTHRITIS
     Route: 030
     Dates: start: 20030101, end: 20090521
  4. ASPIRIN [Concomitant]
  5. DOXAZOSIN MESYLATE [Concomitant]
  6. FELODIPINE [Concomitant]
  7. FERROUS SULFATE TAB [Concomitant]
  8. FLUOXETINE [Concomitant]
  9. INDAPAMIDE [Concomitant]
  10. IRBESARTAN [Concomitant]
  11. LANSOPRAZOLE [Concomitant]
  12. PROCYCLIDINE HCL [Concomitant]
  13. ROSUVASTATIN [Concomitant]

REACTIONS (16)
  - AMNESIA [None]
  - ANXIETY [None]
  - CONDITION AGGRAVATED [None]
  - CONFUSIONAL STATE [None]
  - DEPRESSION [None]
  - DRUG INTERACTION [None]
  - DYSKINESIA [None]
  - EXTRAPYRAMIDAL DISORDER [None]
  - HEADACHE [None]
  - INSOMNIA [None]
  - MASKED FACIES [None]
  - MOBILITY DECREASED [None]
  - MOUTH ULCERATION [None]
  - NECK PAIN [None]
  - SALIVARY HYPERSECRETION [None]
  - TARDIVE DYSKINESIA [None]
